FAERS Safety Report 23128264 (Version 1)
Quarter: 2023Q4

REPORT INFORMATION
  Report Type: Spontaneous
  Country: US (occurrence: US)
  Receive Date: 20231031
  Receipt Date: 20231031
  Transmission Date: 20240110
  Serious: No
  Sender: FDA-Public Use
  Company Number: US-ABBVIE-5474162

PATIENT
  Age: 62 Year
  Sex: Female

DRUGS (1)
  1. HUMIRA [Suspect]
     Active Substance: ADALIMUMAB
     Indication: Product used for unknown indication
     Dosage: MAINTENANCE DOSE
     Route: 058
     Dates: start: 202302

REACTIONS (3)
  - Abdominal symptom [Unknown]
  - Gastrointestinal disorder [Unknown]
  - Accident [Unknown]

NARRATIVE: CASE EVENT DATE: 20230701
